FAERS Safety Report 21272642 (Version 16)
Quarter: 2024Q4

REPORT INFORMATION
  Report Type: Report from Study
  Country: JP (occurrence: JP)
  Receive Date: 20220830
  Receipt Date: 20241211
  Transmission Date: 20250114
  Serious: Yes (Hospitalization, Other)
  Sender: TAKEDA
  Company Number: JP-TAKEDA-2022TJP071751

PATIENT
  Age: 25 Year
  Sex: Female
  Weight: 56.9 kg

DRUGS (25)
  1. TEDUGLUTIDE [Suspect]
     Active Substance: TEDUGLUTIDE
     Indication: Short-bowel syndrome
     Dosage: 0.05 MILLIGRAM/KILOGRAM, QD
     Dates: start: 20220315, end: 20221101
  2. TEDUGLUTIDE [Suspect]
     Active Substance: TEDUGLUTIDE
     Dosage: 0.05 MILLIGRAM/KILOGRAM, QD
     Dates: start: 20221201, end: 20230514
  3. TEDUGLUTIDE [Suspect]
     Active Substance: TEDUGLUTIDE
     Dosage: 0.05 MILLIGRAM/KILOGRAM, QD
     Dates: start: 20230815
  4. TEDUGLUTIDE [Suspect]
     Active Substance: TEDUGLUTIDE
  5. REMICADE [Suspect]
     Active Substance: INFLIXIMAB
     Indication: Rheumatic disorder
     Dosage: UNK
  6. BIO-THREE [Concomitant]
     Active Substance: HERBALS
     Indication: Short-bowel syndrome
     Dosage: UNK
  7. LOPERAMIDE [Concomitant]
     Active Substance: LOPERAMIDE
     Indication: Short-bowel syndrome
     Dosage: 3 MILLIGRAM
  8. NEXIUM [Concomitant]
     Active Substance: ESOMEPRAZOLE MAGNESIUM
     Dosage: UNK
  9. BEPOTASTINE BESYLATE [Concomitant]
     Active Substance: BEPOTASTINE BESYLATE
     Dosage: UNK
  10. PRANLUKAST [Concomitant]
     Active Substance: PRANLUKAST
     Dosage: UNK
  11. POLAPREZINC [Concomitant]
     Active Substance: POLAPREZINC
     Dosage: UNK
  12. LOXOPROFEN SODIUM [Concomitant]
     Active Substance: LOXOPROFEN SODIUM
     Dosage: UNK
  13. LANSOPRAZOLE [Concomitant]
     Active Substance: LANSOPRAZOLE
     Dosage: UNK
  14. METHOTREXATE [Concomitant]
     Active Substance: METHOTREXATE
     Dosage: 4 MILLIGRAM
  15. PREDNISOLONE [Concomitant]
     Active Substance: PREDNISOLONE
     Dosage: 5 MILLIGRAM
  16. CINAL [Concomitant]
     Dosage: UNK
  17. ALFACALCIDOL [Concomitant]
     Active Substance: ALFACALCIDOL
     Dosage: 2 MICROGRAM
  18. ZINC ACETATE [Concomitant]
     Active Substance: ZINC ACETATE
     Dosage: 50 MILLIGRAM
  19. CYANOCOBALAMIN\PYRIDOXINE HYDROCHLORIDE\THIAMINE [Concomitant]
     Active Substance: CYANOCOBALAMIN\PYRIDOXINE HYDROCHLORIDE\THIAMINE
     Dosage: 1 DOSAGE FORM
  20. AMINO ACIDS\DEXTROSE\ELECTROLYTES NOS\MINERALS\VITAMINS [Concomitant]
     Active Substance: AMINO ACIDS\DEXTROSE\ELECTROLYTES NOS\MINERALS\VITAMINS
     Dosage: UNK
  21. LANSOPRAZOLE [Concomitant]
     Active Substance: LANSOPRAZOLE
     Dosage: 15 MILLIGRAM
  22. POTASSIUM CHLORIDE [Concomitant]
     Active Substance: POTASSIUM CHLORIDE
     Dosage: UNK
  23. FOLIC ACID [Concomitant]
     Active Substance: FOLIC ACID
     Dosage: 5 MILLIGRAM
  24. CIZANARINE N [Concomitant]
     Dosage: UNK
  25. ASELEND [Concomitant]
     Dosage: UNK

REACTIONS (8)
  - Vascular device infection [Recovered/Resolved]
  - Heat illness [Recovered/Resolved]
  - Lumbar vertebral fracture [Unknown]
  - Abdominal pain [Recovered/Resolved]
  - Rash [Recovered/Resolved]
  - Arthralgia [Recovering/Resolving]
  - Psoriasis [Recovered/Resolved]
  - Inappropriate schedule of product administration [Recovered/Resolved]

NARRATIVE: CASE EVENT DATE: 20220614
